FAERS Safety Report 22116265 (Version 1)
Quarter: 2023Q1

REPORT INFORMATION
  Report Type: Spontaneous
  Country: US (occurrence: US)
  Receive Date: 20230320
  Receipt Date: 20230320
  Transmission Date: 20230418
  Serious: Yes (Hospitalization)
  Sender: FDA-Public Use
  Company Number: US-TORRENT-00012567

PATIENT
  Age: 14 Year
  Sex: Male

DRUGS (3)
  1. FENOFIBRATE [Suspect]
     Active Substance: FENOFIBRATE
     Indication: Hypertriglyceridaemia
     Dosage: UNKNOWN
     Route: 065
  2. NIACIN [Suspect]
     Active Substance: NIACIN
     Indication: Hypertriglyceridaemia
     Dosage: UNKNOWN
     Route: 065
  3. ATORVASTATIN [Suspect]
     Active Substance: ATORVASTATIN
     Indication: Hypertriglyceridaemia
     Dosage: UNKNOWN
     Route: 065

REACTIONS (1)
  - Treatment failure [Unknown]
